FAERS Safety Report 19721059 (Version 2)
Quarter: 2021Q4

REPORT INFORMATION
  Report Type: Report from Study
  Country: US (occurrence: US)
  Receive Date: 20210818
  Receipt Date: 20211221
  Transmission Date: 20220304
  Serious: Yes (Hospitalization)
  Sender: FDA-Public Use
  Company Number: US-ABBVIE-21P-163-4037217-00

PATIENT
  Age: 56 Year
  Sex: Female
  Weight: 82.2 kg

DRUGS (4)
  1. IBRUTINIB [Suspect]
     Active Substance: IBRUTINIB
     Indication: B-cell lymphoma
     Route: 048
     Dates: start: 20210706, end: 20210730
  2. LISOCABTAGENE MARALEUCEL [Concomitant]
     Active Substance: LISOCABTAGENE MARALEUCEL
     Indication: B-cell lymphoma
     Dosage: 100 X 10^6 CAR + T CELLS, SINGLE
     Route: 042
     Dates: start: 20210714, end: 20210714
  3. CYCLOPHOSPHAMIDE [Concomitant]
     Active Substance: CYCLOPHOSPHAMIDE
     Indication: B-cell lymphoma
     Route: 042
     Dates: start: 20210703, end: 20210705
  4. FLUDARABINE [Concomitant]
     Active Substance: FLUDARABINE PHOSPHATE
     Indication: B-cell lymphoma
     Route: 042
     Dates: start: 20210703, end: 20210705

REACTIONS (2)
  - Enteritis [Not Recovered/Not Resolved]
  - Febrile neutropenia [Not Recovered/Not Resolved]

NARRATIVE: CASE EVENT DATE: 20210729
